FAERS Safety Report 8282341-3 (Version None)
Quarter: 2012Q2

REPORT INFORMATION
  Report Type: 
  Country: None (occurrence: None)
  Receive Date: 20120413
  Receipt Date: 20120402
  Transmission Date: 20120825
  Serious: Yes (Hospitalization, Other)
  Sender: FDA-Public Use
  Company Number: US-SHIRE-ALL1-2012-00874

PATIENT
  Age: 6 Year
  Sex: Female

DRUGS (2)
  1. INTUNIV [Suspect]
     Indication: ATTENTION DEFICIT/HYPERACTIVITY DISORDER
     Dosage: 1 MG, 1X/DAY:QD
     Route: 048
     Dates: start: 20120124
  2. INTUNIV [Suspect]
     Dosage: 1 MG, 1X/DAY:QD
     Route: 048

REACTIONS (3)
  - HEART RATE INCREASED [None]
  - ACCIDENTAL OVERDOSE [None]
  - HYPOTENSION [None]
